FAERS Safety Report 13077598 (Version 1)
Quarter: 2016Q4

REPORT INFORMATION
  Report Type: Spontaneous
  Country: US (occurrence: US)
  Receive Date: 20161231
  Receipt Date: 20161231
  Transmission Date: 20170207
  Serious: No
  Sender: FDA-Public Use
  Company Number: US-DRREDDYS-USA/USA/16/0083991

PATIENT
  Age: 69 Year
  Sex: Female

DRUGS (3)
  1. NICOTINE. [Suspect]
     Active Substance: NICOTINE
     Route: 065
     Dates: start: 20160823, end: 20161008
  2. NICOTINE. [Suspect]
     Active Substance: NICOTINE
     Indication: PRODUCT USED FOR UNKNOWN INDICATION
     Route: 065
  3. NICOTINE. [Suspect]
     Active Substance: NICOTINE
     Route: 065
     Dates: start: 20161011

REACTIONS (4)
  - Nicotine dependence [Unknown]
  - Treatment noncompliance [Unknown]
  - Drug ineffective [Unknown]
  - Product quality issue [Unknown]
